FAERS Safety Report 13237133 (Version 1)
Quarter: 2017Q1

REPORT INFORMATION
  Report Type: Spontaneous
  Country: US (occurrence: US)
  Receive Date: 20170215
  Receipt Date: 20170215
  Transmission Date: 20170428
  Serious: No
  Sender: FDA-Public Use
  Company Number: US-009507513-1701USA009219

PATIENT
  Age: 33 Year
  Sex: Female

DRUGS (1)
  1. NEXPLANON [Suspect]
     Active Substance: ETONOGESTREL
     Indication: CONTRACEPTION
     Dosage: 68 MG, 1 ROD/3 YEARS
     Route: 059
     Dates: start: 20170119

REACTIONS (3)
  - Complication of device insertion [Not Recovered/Not Resolved]
  - Device difficult to use [Unknown]
  - Contusion [Unknown]

NARRATIVE: CASE EVENT DATE: 20170119
